FAERS Safety Report 6420394-5 (Version None)
Quarter: 2009Q4

REPORT INFORMATION
  Report Type: 
  Country: None (occurrence: None)
  Receive Date: 20091029
  Receipt Date: 20091016
  Transmission Date: 20100525
  Serious: Yes (Hospitalization)
  Sender: FDA-Public Use
  Company Number: US-ELI_LILLY_AND_COMPANY-US200910004776

PATIENT
  Age: 28 Year
  Sex: Female

DRUGS (4)
  1. ZYPREXA ZYDIS [Suspect]
     Indication: SCHIZOAFFECTIVE DISORDER
     Dosage: 15 MG, UNK
     Dates: start: 20091002, end: 20091001
  2. ZYPREXA [Suspect]
     Indication: SCHIZOAFFECTIVE DISORDER
     Dosage: 20 MG, UNK
     Dates: start: 20091001, end: 20091001
  3. ZYPREXA [Suspect]
     Dosage: 30 MG, UNK
     Dates: start: 20091001, end: 20091001
  4. ZYPREXA [Suspect]
     Dosage: 10 MG, UNK
     Dates: start: 20091001

REACTIONS (5)
  - OVERDOSE [None]
  - PSYCHIATRIC DECOMPENSATION [None]
  - THERAPEUTIC PRODUCT INEFFECTIVE [None]
  - VISION BLURRED [None]
  - WEIGHT INCREASED [None]
